FAERS Safety Report 5397091-0 (Version None)
Quarter: 2007Q3

REPORT INFORMATION
  Report Type: 
  Country: None (occurrence: None)
  Receive Date: 20070723
  Receipt Date: 20070717
  Transmission Date: 20080115
  Serious: Yes (Hospitalization)
  Sender: FDA-Public Use
  Company Number: 2007SP010634

PATIENT
  Age: 59 Year
  Sex: Male
  Weight: 101.6057 kg

DRUGS (5)
  1. PEG-INTRON [Suspect]
     Indication: HEPATITIS C
     Dosage: 150 MCG; SC
     Route: 058
     Dates: start: 20070413, end: 20070502
  2. RIBAVIRIN [Suspect]
     Indication: HEPATITIS C
     Dosage: 600 MG; BID; PO
     Route: 048
     Dates: start: 20070413, end: 20070502
  3. TOPAMAX [Concomitant]
  4. RISPERDAL [Concomitant]
  5. CYCLOBENZAPRINE HCL [Concomitant]

REACTIONS (4)
  - ASTHENIA [None]
  - ENCEPHALOPATHY [None]
  - LEUKOPENIA [None]
  - THROMBOCYTOPENIA [None]
